FAERS Safety Report 13940027 (Version 2)
Quarter: 2017Q3

REPORT INFORMATION
  Report Type: Spontaneous
  Country: US (occurrence: US)
  Receive Date: 20170906
  Receipt Date: 20170908
  Transmission Date: 20171127
  Serious: Yes (Death, Hospitalization)
  Sender: FDA-Public Use
  Company Number: US-STRIDES ARCOLAB LIMITED-2017SP012339

PATIENT

DRUGS (3)
  1. CLONIDINE. [Concomitant]
     Active Substance: CLONIDINE
     Indication: HYPERTENSION
     Dosage: UNKNOWN
     Route: 065
  2. METOPROLOL. [Concomitant]
     Active Substance: METOPROLOL
     Indication: HYPERTENSION
     Dosage: UNKNOWN
     Route: 065
  3. HYDRALAZINE HCL [Suspect]
     Active Substance: HYDRALAZINE HYDROCHLORIDE
     Indication: HYPERTENSION
     Dosage: UNKNOWN
     Route: 065

REACTIONS (13)
  - Blister [Unknown]
  - Glomerulonephritis rapidly progressive [Unknown]
  - Multiple organ dysfunction syndrome [Fatal]
  - Acute kidney injury [Unknown]
  - Pulmonary haemorrhage [Unknown]
  - Disorganised speech [Unknown]
  - Cerebral infarction [Fatal]
  - Hypersensitivity vasculitis [Unknown]
  - Peripheral swelling [Unknown]
  - Pyrexia [Unknown]
  - Anti-neutrophil cytoplasmic antibody positive vasculitis [Fatal]
  - Petechiae [Unknown]
  - Pulmonary renal syndrome [Fatal]
